FAERS Safety Report 7973225-6 (Version None)
Quarter: 2011Q4

REPORT INFORMATION
  Report Type: 
  Country: None (occurrence: None)
  Receive Date: 20111213
  Receipt Date: 20111204
  Transmission Date: 20120403
  Serious: Yes (Hospitalization, Other)
  Sender: FDA-Public Use
  Company Number: PHEH2011US008669

PATIENT
  Age: 50 Year
  Sex: Male

DRUGS (4)
  1. ALLOPURINOL [Concomitant]
     Dosage: 100 MG, UNK
     Route: 048
     Dates: start: 20111101
  2. EXJADE [Suspect]
     Indication: IRON OVERLOAD
     Dosage: UNK UKN, UNK
     Route: 048
     Dates: start: 20111013, end: 20111102
  3. EXJADE [Suspect]
     Dosage: 1000 MG, DAILY
     Route: 048
     Dates: start: 20111202
  4. EXJADE [Suspect]
     Indication: SICKLE CELL ANAEMIA
     Dosage: 500 MG, DAILY
     Route: 048
     Dates: start: 20111001

REACTIONS (4)
  - SICKLE CELL ANAEMIA [None]
  - DYSPNOEA [None]
  - SUPRAVENTRICULAR TACHYCARDIA [None]
  - ARRHYTHMIA [None]
